FAERS Safety Report 15693904 (Version 1)
Quarter: 2018Q4

REPORT INFORMATION
  Report Type: Report from Study
  Country: JP (occurrence: JP)
  Receive Date: 20181206
  Receipt Date: 20181206
  Transmission Date: 20190205
  Serious: Yes (Other)
  Sender: FDA-Public Use
  Company Number: JP-GLAXOSMITHKLINE-JP2018JPN217814

PATIENT
  Sex: Male

DRUGS (1)
  1. DUTASTERIDE (ZAGALLO) [Suspect]
     Active Substance: DUTASTERIDE
     Indication: ANDROGENETIC ALOPECIA
     Dosage: UNK
     Route: 048

REACTIONS (1)
  - Prostate cancer [Unknown]
